FAERS Safety Report 9689462 (Version 2)
Quarter: 2013Q4

REPORT INFORMATION
  Report Type: Spontaneous
  Country: US (occurrence: US)
  Receive Date: 20131114
  Receipt Date: 20131120
  Transmission Date: 20140711
  Serious: Yes (Other)
  Sender: FDA-Public Use
  Company Number: US-GILEAD-2013-0087381

PATIENT
  Age: 70 Year
  Sex: Female

DRUGS (5)
  1. TRUVADA [Suspect]
     Indication: HIV INFECTION
     Dosage: UNK
     Dates: start: 2009
  2. ATAZANAVIR [Suspect]
     Indication: HIV INFECTION
     Dosage: UNK
     Dates: start: 2009
  3. RITONAVIR [Suspect]
     Indication: HIV INFECTION
     Dosage: UNK
  4. METFORMIN [Concomitant]
     Indication: DIABETES MELLITUS
  5. GLIMEPIRIDE [Concomitant]
     Indication: DIABETES MELLITUS
     Route: 048

REACTIONS (1)
  - Lipodystrophy acquired [Not Recovered/Not Resolved]
